FAERS Safety Report 5209524-0 (Version None)
Quarter: 2006Q4

REPORT INFORMATION
  Report Type: 
  Country: None (occurrence: None)
  Receive Date: 20061101
  Receipt Date: 20060828
  Transmission Date: 20070319
  Serious: No
  Sender: FDA-Public Use
  Company Number: 2006PV020282

PATIENT
  Age: 52 Year
  Sex: Female
  Weight: 68 kg

DRUGS (10)
  1. SYMLIN [Suspect]
     Indication: DIABETES MELLITUS
     Dosage: 120 MCG; TID; SC
     Route: 058
     Dates: start: 20060301, end: 20060417
  2. NPH INSULIN [Concomitant]
  3. PREDNISONE [Concomitant]
  4. NEXIUM [Concomitant]
  5. LIPITOR [Concomitant]
  6. NORVASC [Concomitant]
  7. LASIX [Concomitant]
  8. NPH INSULIN [Concomitant]
  9. NPH UNITS [Concomitant]
  10. PREDNISONE [Concomitant]

REACTIONS (4)
  - FUNGAL INFECTION [None]
  - LUNG NEOPLASM [None]
  - LUNG TRANSPLANT REJECTION [None]
  - WEIGHT DECREASED [None]
